FAERS Safety Report 12893817 (Version 2)
Quarter: 2020Q2

REPORT INFORMATION
  Report Type: Spontaneous
  Country: TR (occurrence: TR)
  Receive Date: 20161028
  Receipt Date: 20200625
  Transmission Date: 20200713
  Serious: Yes (Hospitalization, Other)
  Sender: FDA-Public Use
  Company Number: TR-009507513-1610TUR010954

PATIENT
  Age: 31 Year
  Sex: Female

DRUGS (3)
  1. DECAPEPTYL (ACETATE) [Suspect]
     Active Substance: TRIPTORELIN ACETATE
     Indication: CONTROLLED OVARIAN STIMULATION
     Dosage: DOSE OF 0.2 MG
  2. PUREGON [FOLLITROPIN BETA] [Suspect]
     Active Substance: FOLLITROPIN
     Indication: IN VITRO FERTILISATION
     Dosage: DOSAGE OF 150 IU
  3. PREGNYL [Suspect]
     Active Substance: CHORIOGONADOTROPIN ALFA
     Indication: LUTEAL PHASE DEFICIENCY
     Dosage: 1500 IU

REACTIONS (2)
  - Ovarian hyperstimulation syndrome [Unknown]
  - Hydrothorax [Recovered/Resolved]
